FAERS Safety Report 19504450 (Version 1)
Quarter: 2021Q3

REPORT INFORMATION
  Report Type: Spontaneous
  Country: US (occurrence: US)
  Receive Date: 20210707
  Receipt Date: 20210707
  Transmission Date: 20211014
  Serious: No
  Sender: FDA-Public Use
  Company Number: US-ELI_LILLY_AND_COMPANY-US202107001685

PATIENT
  Sex: Female

DRUGS (7)
  1. ZYRTEC [Concomitant]
     Active Substance: CETIRIZINE HYDROCHLORIDE
  2. EMGALITY [Suspect]
     Active Substance: GALCANEZUMAB-GNLM
     Dosage: 120 MG, MONTHLY (1/M)
     Route: 058
  3. AIMOVIG [Concomitant]
     Active Substance: ERENUMAB-AOOE
  4. EMGALITY [Suspect]
     Active Substance: GALCANEZUMAB-GNLM
     Dosage: 120 MG, SINGLE (SECOND LOADING DOSE)
     Route: 058
  5. BENADRYL [Concomitant]
     Active Substance: DIPHENHYDRAMINE HYDROCHLORIDE
  6. EMGALITY [Suspect]
     Active Substance: GALCANEZUMAB-GNLM
     Indication: MIGRAINE
     Dosage: 120 MG, SINGLE(FIRST LOADING DOSE)
     Route: 058
  7. XOLAIR [Concomitant]
     Active Substance: OMALIZUMAB

REACTIONS (2)
  - Injection site urticaria [Unknown]
  - Chronic spontaneous urticaria [Unknown]
